FAERS Safety Report 8249457-9 (Version None)
Quarter: 2012Q2

REPORT INFORMATION
  Report Type: 
  Country: None (occurrence: None)
  Receive Date: 20120402
  Receipt Date: 20120319
  Transmission Date: 20120825
  Serious: Yes (Congenital Anomaly)
  Sender: FDA-Public Use
  Company Number: ES-JNJFOC-20120309809

PATIENT

DRUGS (1)
  1. REMICADE [Suspect]
     Indication: FOETAL EXPOSURE DURING PREGNANCY
     Route: 064
     Dates: start: 20090924

REACTIONS (3)
  - MATERNAL DRUGS AFFECTING FOETUS [None]
  - CONGENITAL ANOMALY [None]
  - ABORTION SPONTANEOUS [None]
